FAERS Safety Report 5033402-3 (Version None)
Quarter: 2006Q2

REPORT INFORMATION
  Report Type: 
  Country: None (occurrence: None)
  Receive Date: 20060623
  Receipt Date: 20060608
  Transmission Date: 20061013
  Serious: Yes (Hospitalization)
  Sender: FDA-Public Use
  Company Number: FI-AVENTIS-200616115GDDC

PATIENT
  Age: 72 Year
  Sex: Male

DRUGS (5)
  1. TAXOTERE [Suspect]
     Indication: PROSTATE CANCER
     Route: 042
     Dates: start: 20060209, end: 20060522
  2. NEORECORMON ^BOEHRINGER MANNHEIM^ [Suspect]
     Indication: PROSTATE CANCER
  3. PREDNISONE [Concomitant]
  4. ENALOC COMP [Concomitant]
  5. ZANIDIP [Concomitant]

REACTIONS (3)
  - BLOOD GLUCOSE INCREASED [None]
  - DRY MOUTH [None]
  - FATIGUE [None]
